FAERS Safety Report 7408988-1 (Version None)
Quarter: 2011Q2

REPORT INFORMATION
  Report Type: 
  Country: None (occurrence: None)
  Receive Date: 20110412
  Receipt Date: 20110401
  Transmission Date: 20111010
  Serious: Yes (Life-Threatening, Other)
  Sender: FDA-Public Use
  Company Number: FR-B.I. PHARMACEUTICALS,INC./RIDGEFIELD-2011-DE-01846DE

PATIENT
  Sex: Female
  Weight: 3.2 kg

DRUGS (3)
  1. TRUVADA [Suspect]
     Indication: DRUG EXPOSURE DURING PREGNANCY
     Route: 064
     Dates: start: 20060414
  2. LEXOMIL [Concomitant]
     Indication: DRUG EXPOSURE DURING PREGNANCY
     Route: 064
     Dates: start: 20091005
  3. NEVIRAPINE [Suspect]
     Indication: DRUG EXPOSURE DURING PREGNANCY
     Route: 064
     Dates: start: 20090126, end: 20100615

REACTIONS (1)
  - FOETAL DISTRESS SYNDROME [None]
